FAERS Safety Report 9312922 (Version 2)
Quarter: 2013Q2

REPORT INFORMATION
  Report Type: Spontaneous
  Country: US (occurrence: US)
  Receive Date: 20130528
  Receipt Date: 20130531
  Transmission Date: 20140414
  Serious: No
  Sender: FDA-Public Use
  Company Number: US-009507513-1305USA013829

PATIENT
  Age: 22 Year
  Sex: Female
  Weight: 81.63 kg

DRUGS (1)
  1. IMPLANON [Suspect]
     Indication: CONTRACEPTION
     Dosage: UNK
     Dates: start: 20111211

REACTIONS (5)
  - Dysmenorrhoea [Unknown]
  - Nausea [Unknown]
  - Hypomenorrhoea [Unknown]
  - Menorrhagia [Unknown]
  - Weight decreased [Unknown]
